FAERS Safety Report 9167503 (Version 1)
Quarter: 2013Q1

REPORT INFORMATION
  Report Type: Spontaneous
  Country: US (occurrence: US)
  Receive Date: 20130318
  Receipt Date: 20130318
  Transmission Date: 20140127
  Serious: Yes (Hospitalization)
  Sender: FDA-Public Use
  Company Number: US-BAYER-2013-031384

PATIENT
  Age: 40 Year
  Sex: Female
  Weight: 87.08 kg

DRUGS (26)
  1. YASMIN [Suspect]
     Indication: MIGRAINE
  2. OCELLA [Suspect]
  3. ROBAXIN [MACROGOL,METHOCARBAMOL] [Concomitant]
     Route: 048
  4. LORAZEPAM [Concomitant]
     Dosage: UNK UNK, PRN
     Route: 048
  5. MOTRIN [Concomitant]
     Dosage: 1 DF, Q 8 HRS AS NEEDED
     Route: 048
  6. NORCO [Concomitant]
     Indication: PAIN
     Dosage: 1-2 TABLETS Q 6 HRS AS NEEDED
     Route: 048
  7. ALBUTEROL [Concomitant]
     Route: 045
  8. QVAR [Concomitant]
     Dosage: 80 MCG
     Route: 045
  9. FLONASE [Concomitant]
     Dosage: 50 MCG
     Route: 045
  10. DETROL LA [Concomitant]
     Dosage: 4 MG, DAY
     Route: 048
  11. CELEXA [Concomitant]
     Dosage: 10 MG, DAILY
     Route: 048
  12. ZOFRAN [Concomitant]
     Route: 048
  13. BACTRIM [SULFAMETHOXAZOLE,TRIMETHOPRIM] [Concomitant]
     Route: 048
  14. SEPTRA DS [Concomitant]
     Route: 048
  15. DELTASONE [Concomitant]
     Route: 048
  16. ZITHROMAX [Concomitant]
     Route: 048
  17. EXCEDRIN [Concomitant]
     Route: 048
  18. SUDAFED [PSEUDOEPHEDRINE HYDROCHLORIDE] [Concomitant]
     Indication: SWELLING FACE
  19. SUDAFED [PSEUDOEPHEDRINE HYDROCHLORIDE] [Concomitant]
     Indication: TENSION HEADACHE
  20. TYLENOL [Concomitant]
     Indication: TENSION HEADACHE
  21. TORADOL [Concomitant]
     Indication: TENSION HEADACHE
  22. ATIVAN [Concomitant]
     Indication: TENSION HEADACHE
  23. IBUPROFEN [IBUPROFEN] [Concomitant]
  24. MORPHINE [Concomitant]
     Indication: NECK PAIN
  25. VALIUM [DIAZEPAM] [Concomitant]
  26. DILAUDID [Concomitant]
     Route: 030

REACTIONS (2)
  - Intracranial venous sinus thrombosis [None]
  - Jugular vein thrombosis [None]
